FAERS Safety Report 10129668 (Version 2)
Quarter: 2015Q1

REPORT INFORMATION
  Report Type: Other
  Country: US (occurrence: US)
  Receive Date: 20140428
  Receipt Date: 20150222
  Transmission Date: 20150720
  Serious: Yes (Death, Hospitalization, Other)
  Sender: FDA-Public Use
  Company Number: US-GSKPPD-2014GSK032851

PATIENT
  Age: 63 Year
  Sex: Female

DRUGS (3)
  1. AVANDIA [Suspect]
     Active Substance: ROSIGLITAZONE MALEATE
     Indication: DIABETES MELLITUS
     Dosage: AVANDIA WAS NOT LISTED AMONG THE PATIENTS RECORDS REVIEWED.
     Route: 048
  2. NORVASC [Concomitant]
     Active Substance: AMLODIPINE BESYLATE
  3. LASIX [Concomitant]
     Active Substance: FUROSEMIDE

REACTIONS (2)
  - Cardio-respiratory arrest [Fatal]
  - Myocardial infarction [Recovered/Resolved]

NARRATIVE: CASE EVENT DATE: 20070207
